FAERS Safety Report 14853435 (Version 1)
Quarter: 2018Q2

REPORT INFORMATION
  Report Type: Spontaneous
  Country: US (occurrence: US)
  Receive Date: 20180507
  Receipt Date: 20180507
  Transmission Date: 20180711
  Serious: No
  Sender: FDA-Public Use
  Company Number: US-PFIZER INC-2018180034

PATIENT
  Sex: Female

DRUGS (5)
  1. INTERFERON [Suspect]
     Active Substance: INTERFERON
     Dosage: UNK
  2. RIBAVIRIN. [Suspect]
     Active Substance: RIBAVIRIN
     Indication: HEPATITIS C VIRUS TEST
     Dosage: UNK
     Route: 048
  3. PEGASYS [Suspect]
     Active Substance: PEGINTERFERON ALFA-2A
     Dosage: UNK
  4. CALCIUM [Concomitant]
     Active Substance: CALCIUM
  5. CHANTIX [Suspect]
     Active Substance: VARENICLINE TARTRATE
     Dosage: UNK
     Dates: start: 20180312

REACTIONS (17)
  - Depression [Unknown]
  - Dental caries [Unknown]
  - Hypoaesthesia [Unknown]
  - Nightmare [Unknown]
  - Gout [Unknown]
  - Gingival pain [Unknown]
  - Toothache [Unknown]
  - Pain [Unknown]
  - Back pain [Unknown]
  - Procedural pain [Recovering/Resolving]
  - Fungal infection [Unknown]
  - Eating disorder [Unknown]
  - Impaired healing [Unknown]
  - Sinusitis [Unknown]
  - Eye infection [Unknown]
  - Chondrocalcinosis pyrophosphate [Unknown]
  - Mastication disorder [Unknown]

NARRATIVE: CASE EVENT DATE: 201802
